FAERS Safety Report 11887974 (Version 1)
Quarter: 2016Q1

REPORT INFORMATION
  Report Type: Spontaneous
  Country: None (occurrence: None)
  Receive Date: 20160104
  Receipt Date: 20160104
  Transmission Date: 20160526
  Serious: No
  Sender: FDA-Public Use
  Company Number: None

PATIENT
  Age: 47 Year
  Sex: Female
  Weight: 99.79 kg

DRUGS (9)
  1. PRISTIQ EXTENDED RELEASE [Concomitant]
     Active Substance: DESVENLAFAXINE SUCCINATE
  2. POTASSIUM [Concomitant]
     Active Substance: POTASSIUM
  3. OXYCODONE 30 MG RHO [Suspect]
     Active Substance: OXYCODONE
     Indication: PAIN
     Route: 048
     Dates: start: 20151206, end: 20160102
  4. SYNTHROID [Concomitant]
     Active Substance: LEVOTHYROXINE SODIUM
  5. PHENEGREN [Concomitant]
  6. LEFLUDIMIDE [Concomitant]
  7. VALIUM [Concomitant]
     Active Substance: DIAZEPAM
  8. ENBREL [Concomitant]
     Active Substance: ETANERCEPT
  9. OXYCODONE [Concomitant]
     Active Substance: OXYCODONE

REACTIONS (9)
  - Muscle spasms [None]
  - Diarrhoea [None]
  - Drug dispensing error [None]
  - Rhinorrhoea [None]
  - Drug withdrawal syndrome [None]
  - Product size issue [None]
  - Drug effect decreased [None]
  - Product quality issue [None]
  - Drug ineffective [None]

NARRATIVE: CASE EVENT DATE: 20151206
